FAERS Safety Report 6150462-7 (Version None)
Quarter: 2009Q2

REPORT INFORMATION
  Report Type: 
  Country: None (occurrence: None)
  Receive Date: 20090409
  Receipt Date: 20090409
  Transmission Date: 20091009
  Serious: Yes (Hospitalization)
  Sender: FDA-Public Use
  Company Number: PHHO2003BE00462

PATIENT
  Sex: Female
  Weight: 74.5 kg

DRUGS (3)
  1. CGS 20267 T30748+ [Suspect]
     Indication: BREAST CANCER
     Dosage: 2.5 MG, QD
     Route: 048
     Dates: start: 20020523
  2. RENITEC [Concomitant]
     Indication: HYPERTENSION
  3. SELOZOK [Concomitant]
     Indication: HYPERTENSION

REACTIONS (7)
  - BONE DENSITY DECREASED [None]
  - JOINT DISLOCATION [None]
  - JOINT SWELLING [None]
  - LUNG DISORDER [None]
  - OSTEOARTHRITIS [None]
  - SURGERY [None]
  - WRIST FRACTURE [None]
